FAERS Safety Report 24712776 (Version 1)
Quarter: 2024Q4

REPORT INFORMATION
  Report Type: Spontaneous
  Country: PR (occurrence: PR)
  Receive Date: 20241209
  Receipt Date: 20241209
  Transmission Date: 20250115
  Serious: Yes (Hospitalization)
  Sender: BRISTOL-MYERS SQUIBB COMPANY
  Company Number: PR-BRISTOL-MYERS SQUIBB COMPANY-2024-188044

PATIENT
  Age: 79 Year
  Sex: Female
  Weight: 62.14 kg

DRUGS (1)
  1. LENALIDOMIDE [Suspect]
     Active Substance: LENALIDOMIDE
     Indication: Plasma cell myeloma
     Dosage: TAKE ONE CAPSULE DAILY FOR 14 DAYS, EVERY 21 DAYS
     Route: 048
     Dates: start: 202405

REACTIONS (1)
  - Fall [Unknown]

NARRATIVE: CASE EVENT DATE: 20241101
